FAERS Safety Report 12200086 (Version 2)
Quarter: 2016Q1

REPORT INFORMATION
  Report Type: Report from Study
  Country: US (occurrence: US)
  Receive Date: 20160322
  Receipt Date: 20160324
  Transmission Date: 20160526
  Serious: Yes (Life-Threatening, Hospitalization, Other)
  Sender: FDA-Public Use
  Company Number: US-ROCHE-1728220

PATIENT
  Age: 53 Year
  Sex: Female

DRUGS (3)
  1. HERCEPTIN [Suspect]
     Active Substance: TRASTUZUMAB
     Indication: BREAST CANCER STAGE IV
     Route: 065
     Dates: start: 201303, end: 201503
  2. KADCYLA [Suspect]
     Active Substance: ADO-TRASTUZUMAB EMTANSINE
     Indication: BREAST CANCER STAGE IV
     Dosage: MOST RECENT DOSE OF TRASTUZUMAB EMTANSINE : 23/FEB/2016
     Route: 065
     Dates: start: 201502
  3. PERJETA [Suspect]
     Active Substance: PERTUZUMAB
     Indication: BREAST CANCER STAGE IV
     Route: 065
     Dates: start: 201303, end: 201503

REACTIONS (8)
  - Chest pain [Unknown]
  - Acute respiratory distress syndrome [Not Recovered/Not Resolved]
  - Oxygen saturation decreased [Unknown]
  - Malaise [Unknown]
  - Cough [Unknown]
  - Lung disorder [Not Recovered/Not Resolved]
  - Epistaxis [Unknown]
  - Neuropathy peripheral [Unknown]

NARRATIVE: CASE EVENT DATE: 20160311
